FAERS Safety Report 11046611 (Version 2)
Quarter: 2015Q2

REPORT INFORMATION
  Report Type: Spontaneous
  Country: US (occurrence: US)
  Receive Date: 20150420
  Receipt Date: 20150512
  Transmission Date: 20150821
  Serious: No
  Sender: FDA-Public Use
  Company Number: US-LEO PHARMA-233006

PATIENT
  Age: 76 Year
  Sex: Male

DRUGS (1)
  1. PICATO [Suspect]
     Active Substance: INGENOL MEBUTATE
     Indication: ACTINIC KERATOSIS
     Dosage: TWO TUBES AT A TIME
     Route: 061
     Dates: start: 20150218, end: 20150220

REACTIONS (7)
  - Application site exfoliation [Recovered/Resolved]
  - Middle insomnia [Recovered/Resolved]
  - Application site erythema [Recovered/Resolved]
  - Incorrect dose administered [Unknown]
  - Product container issue [Unknown]
  - Application site pain [Recovered/Resolved]
  - Drug administration error [Unknown]

NARRATIVE: CASE EVENT DATE: 20150218
